FAERS Safety Report 24425084 (Version 1)
Quarter: 2024Q4

REPORT INFORMATION
  Report Type: Report from Study
  Country: EG (occurrence: EG)
  Receive Date: 20241010
  Receipt Date: 20241010
  Transmission Date: 20250115
  Serious: Yes (Hospitalization, Other)
  Sender: TAKEDA
  Company Number: EG-JNJFOC-20241008199

PATIENT
  Sex: Male
  Weight: 78 kg

DRUGS (1)
  1. BORTEZOMIB [Suspect]
     Active Substance: BORTEZOMIB
     Indication: Plasma cell myeloma
     Dosage: UNK
     Route: 065
     Dates: start: 20231001

REACTIONS (4)
  - Plasma cell myeloma [Unknown]
  - Fatigue [Unknown]
  - Haemoglobin decreased [Unknown]
  - Bone pain [Unknown]

NARRATIVE: CASE EVENT DATE: 20240101
